FAERS Safety Report 5807545-8 (Version None)
Quarter: 2008Q3

REPORT INFORMATION
  Report Type: 
  Country: None (occurrence: None)
  Receive Date: 20080709
  Receipt Date: 20080709
  Transmission Date: 20090109
  Serious: Yes (Life-Threatening, Hospitalization)
  Sender: FDA-Public Use
  Company Number: None

PATIENT
  Age: 85 Year
  Sex: Male

DRUGS (2)
  1. PAMIDRONATE DISODIUM [Suspect]
     Indication: HYPERCALCAEMIA
     Dosage: 90 MG OTHER IV; 30 MG EVERY DAY PO
     Route: 042
     Dates: start: 20071001
  2. PAMIDRONATE DISODIUM [Suspect]
     Indication: HYPERTENSION
     Dosage: 90 MG OTHER IV; 30 MG EVERY DAY PO
     Route: 042
     Dates: start: 20071001

REACTIONS (2)
  - HAEMORRHAGE INTRACRANIAL [None]
  - HYPERTENSION [None]
